FAERS Safety Report 7026698-X (Version None)
Quarter: 2010Q3

REPORT INFORMATION
  Report Type: 
  Country: None (occurrence: None)
  Receive Date: 20100930
  Receipt Date: 20100913
  Transmission Date: 20110219
  Serious: Yes (Hospitalization)
  Sender: FDA-Public Use
  Company Number: 2010TR0035

PATIENT

DRUGS (1)
  1. ORFADIN [Suspect]

REACTIONS (1)
  - LIVER TRANSPLANT [None]
